FAERS Safety Report 9741869 (Version 2)
Quarter: 2013Q4

REPORT INFORMATION
  Report Type: Report from Study
  Country: CZ (occurrence: CZ)
  Receive Date: 20131210
  Receipt Date: 20131216
  Transmission Date: 20140711
  Serious: Yes (Death, Other)
  Sender: FDA-Public Use
  Company Number: PHHY2013CZ142493

PATIENT
  Sex: Female

DRUGS (2)
  1. IMATINIB [Suspect]
     Dosage: UNK UKN, UNK
     Dates: start: 20050131, end: 20060403
  2. AMN107 [Suspect]
     Dosage: UNK UKN, UNK
     Dates: start: 20090701

REACTIONS (3)
  - Peripheral vascular disorder [Fatal]
  - Post procedural complication [Fatal]
  - Peripheral ischaemia [Unknown]
